FAERS Safety Report 21861163 (Version 2)
Quarter: 2023Q1

REPORT INFORMATION
  Report Type: Report from Study
  Country: AU (occurrence: AU)
  Receive Date: 20230113
  Receipt Date: 20230303
  Transmission Date: 20230417
  Serious: Yes (Death, Other)
  Sender: FDA-Public Use
  Company Number: AU-AMGEN-AUSNI2023006302

PATIENT
  Age: 76 Year

DRUGS (2)
  1. SOTORASIB [Suspect]
     Active Substance: SOTORASIB
     Indication: Non-small cell lung cancer
     Dosage: 900 MILLIGRAM, QD
     Route: 065
     Dates: start: 20210916
  2. SOTORASIB [Suspect]
     Active Substance: SOTORASIB
     Dosage: 720 MILLIGRAM
     Route: 065
     Dates: start: 20211103, end: 20211201

REACTIONS (1)
  - Lung neoplasm malignant [Fatal]

NARRATIVE: CASE EVENT DATE: 20220517
